FAERS Safety Report 15334390 (Version 2)
Quarter: 2018Q3

REPORT INFORMATION
  Report Type: Spontaneous
  Country: US (occurrence: US)
  Receive Date: 20180830
  Receipt Date: 20180919
  Transmission Date: 20181010
  Serious: Yes (Disabling, Other)
  Sender: FDA-Public Use
  Company Number: US-PFIZER INC-2018345652

PATIENT
  Age: 25 Year
  Sex: Male
  Weight: 104.33 kg

DRUGS (2)
  1. LYRICA [Suspect]
     Active Substance: PREGABALIN
     Indication: FIBROMYALGIA
     Dosage: 300 MG, 2X/DAY
     Route: 048
     Dates: start: 2017
  2. LYRICA [Suspect]
     Active Substance: PREGABALIN
     Indication: NERVOUS SYSTEM DISORDER
     Dosage: 1200 MG, 1X/DAY

REACTIONS (4)
  - Gait disturbance [Unknown]
  - Prescribed overdose [Unknown]
  - Drug effect incomplete [Unknown]
  - Weight increased [Unknown]

NARRATIVE: CASE EVENT DATE: 201806
